FAERS Safety Report 7668980-9 (Version None)
Quarter: 2011Q3

REPORT INFORMATION
  Report Type: 
  Country: None (occurrence: None)
  Receive Date: 20110808
  Receipt Date: 20110802
  Transmission Date: 20111222
  Serious: Yes (Other)
  Sender: FDA-Public Use
  Company Number: JP-GLAXOSMITHKLINE-B0737352A

PATIENT
  Age: 63 Year
  Sex: Male

DRUGS (2)
  1. UNKNOWN DRUG [Concomitant]
     Indication: MULTIPLE MYELOMA
     Route: 065
     Dates: start: 20091001, end: 20110401
  2. ALKERAN [Suspect]
     Indication: MULTIPLE MYELOMA
     Route: 048
     Dates: start: 20101001, end: 20110401

REACTIONS (1)
  - SMALL INTESTINE CARCINOMA [None]
